FAERS Safety Report 7815900-X (Version None)
Quarter: 2011Q4

REPORT INFORMATION
  Report Type: 
  Country: None (occurrence: None)
  Receive Date: 20111014
  Receipt Date: 20111010
  Transmission Date: 20120403
  Serious: Yes (Other)
  Sender: FDA-Public Use
  Company Number: US-AMGEN-USASP2011049822

PATIENT
  Age: 84 Year
  Sex: Female

DRUGS (2)
  1. PROLIA [Suspect]
     Indication: OSTEOPOROSIS POSTMENOPAUSAL
     Dosage: 60 MG, Q6MO
     Dates: start: 20110301
  2. XGEVA [Suspect]
     Indication: OSTEOPOROSIS POSTMENOPAUSAL
     Dosage: 120 MG, UNK
     Dates: start: 20110914, end: 20110914

REACTIONS (1)
  - DRUG ADMINISTRATION ERROR [None]
